FAERS Safety Report 21088012 (Version 1)
Quarter: 2022Q3

REPORT INFORMATION
  Report Type: Spontaneous
  Country: FR (occurrence: FR)
  Receive Date: 20220715
  Receipt Date: 20220715
  Transmission Date: 20221027
  Serious: Yes (Hospitalization, Other)
  Sender: FDA-Public Use
  Company Number: None

PATIENT
  Age: 75 Year
  Sex: Female
  Weight: 44 kg

DRUGS (5)
  1. CYCLOPHOSPHAMIDE [Suspect]
     Active Substance: CYCLOPHOSPHAMIDE
     Indication: Invasive ductal breast carcinoma
     Dosage: C1
     Route: 042
     Dates: start: 20220622
  2. APREPITANT [Suspect]
     Active Substance: APREPITANT
     Indication: Invasive ductal breast carcinoma
     Dosage: 125 MG
     Route: 048
     Dates: start: 20220622
  3. FOSAMAX [Concomitant]
     Active Substance: ALENDRONATE SODIUM
     Indication: Product used for unknown indication
     Dosage: ALENDRONATE MONOSODIUM TRIHYDRATE
  4. EPIRUBICIN [Concomitant]
     Active Substance: EPIRUBICIN
     Indication: Invasive ductal breast carcinoma
     Dosage: C1
     Route: 042
     Dates: start: 20220622
  5. PROPRANOLOL [Concomitant]
     Active Substance: PROPRANOLOL HYDROCHLORIDE
     Indication: Familial tremor
     Dosage: 160 MG, QD
     Route: 048

REACTIONS (1)
  - Hyponatraemic coma [Recovered/Resolved]

NARRATIVE: CASE EVENT DATE: 20220624
